FAERS Safety Report 22652610 (Version 1)
Quarter: 2023Q2

REPORT INFORMATION
  Report Type: Spontaneous
  Country: KW (occurrence: KW)
  Receive Date: 20230629
  Receipt Date: 20230629
  Transmission Date: 20230721
  Serious: Yes (Hospitalization)
  Sender: FDA-Public Use
  Company Number: KW-PFIZER INC-PV202300102789

PATIENT
  Age: 24 Year
  Sex: Female

DRUGS (1)
  1. ENBREL [Suspect]
     Active Substance: ETANERCEPT
     Indication: Product used for unknown indication
     Dosage: 50 MG, WEEKLY
     Route: 058
     Dates: start: 20230406

REACTIONS (5)
  - Gallbladder disorder [Unknown]
  - Rhinorrhoea [Unknown]
  - Malaise [Unknown]
  - Product dose omission issue [Unknown]
  - Pyrexia [Unknown]
